FAERS Safety Report 13063613 (Version 1)
Quarter: 2016Q4

REPORT INFORMATION
  Report Type: Spontaneous
  Country: ES (occurrence: ES)
  Receive Date: 20161227
  Receipt Date: 20161227
  Transmission Date: 20170207
  Serious: Yes (Death)
  Sender: FDA-Public Use
  Company Number: ES-SUN PHARMACEUTICAL INDUSTRIES LTD-2016R1-117207

PATIENT
  Sex: Female

DRUGS (2)
  1. CARBIDOPA/ENTACAPONE/LEVODOPA [Suspect]
     Active Substance: CARBIDOPA\ENTACAPONE\LEVODOPA
     Indication: PARKINSON^S DISEASE
     Dosage: UNK
     Route: 065
  2. CLOZAPINE. [Suspect]
     Active Substance: CLOZAPINE
     Indication: PARKINSON^S DISEASE
     Dosage: UNK
     Route: 048

REACTIONS (2)
  - Chest pain [Fatal]
  - Chills [Fatal]
